FAERS Safety Report 13655295 (Version 2)
Quarter: 2017Q3

REPORT INFORMATION
  Report Type: Report from Study
  Country: JP (occurrence: JP)
  Receive Date: 20170615
  Receipt Date: 20170710
  Transmission Date: 20171127
  Serious: Yes (Life-Threatening, Hospitalization)
  Sender: FDA-Public Use
  Company Number: JP-B.I. PHARMACEUTICALS,INC./RIDGEFIELD-2017-NB-003266

PATIENT
  Age: 72 Year
  Sex: Male

DRUGS (1)
  1. BIBF 1120 [Suspect]
     Active Substance: NINTEDANIB
     Indication: IDIOPATHIC PULMONARY FIBROSIS
     Route: 048
     Dates: start: 20170411

REACTIONS (1)
  - Atrioventricular block [Recovering/Resolving]

NARRATIVE: CASE EVENT DATE: 20170602
